FAERS Safety Report 15699560 (Version 4)
Quarter: 2019Q4

REPORT INFORMATION
  Report Type: Spontaneous
  Country: JP (occurrence: JP)
  Receive Date: 20181207
  Receipt Date: 20191202
  Transmission Date: 20200122
  Serious: Yes (Death, Other)
  Sender: FDA-Public Use
  Company Number: JP-SA-2018SA327175

PATIENT
  Age: 77 Year
  Sex: Male
  Weight: 54 kg

DRUGS (5)
  1. DECADRON [Concomitant]
     Active Substance: DEXAMETHASONE
     Indication: PRODUCT USED FOR UNKNOWN INDICATION
     Dosage: 6.6 MG, Q3W
     Route: 041
     Dates: start: 20181119
  2. G LASTA [Concomitant]
     Active Substance: PEGFILGRASTIM
     Indication: PRODUCT USED FOR UNKNOWN INDICATION
     Dosage: 3.6 MG, Q3W
     Route: 058
     Dates: start: 20181121
  3. JEVTANA [Suspect]
     Active Substance: CABAZITAXEL
     Indication: HORMONE-REFRACTORY PROSTATE CANCER
     Dosage: 35 MG, Q3W
     Route: 041
     Dates: start: 20181119
  4. GASTER [Concomitant]
     Active Substance: FAMOTIDINE
     Indication: PRODUCT USED FOR UNKNOWN INDICATION
     Dosage: 20 MG, Q3W
     Route: 041
     Dates: start: 20181119
  5. POLARAMINE [Concomitant]
     Active Substance: DEXCHLORPHENIRAMINE MALEATE
     Indication: PRODUCT USED FOR UNKNOWN INDICATION
     Dosage: 5 MG, Q3W
     Route: 041
     Dates: start: 20181119

REACTIONS (13)
  - Neutrophil count decreased [Fatal]
  - Cardiac arrest [Recovering/Resolving]
  - Febrile neutropenia [Fatal]
  - Septic shock [Fatal]
  - Constipation [Unknown]
  - White blood cell count decreased [Fatal]
  - Pyrexia [Fatal]
  - Urine output decreased [Fatal]
  - Respiratory arrest [Recovering/Resolving]
  - Malaise [Fatal]
  - Disseminated intravascular coagulation [Fatal]
  - Decreased appetite [Fatal]
  - Blood pressure decreased [Fatal]

NARRATIVE: CASE EVENT DATE: 20181123
